FAERS Safety Report 9274897 (Version 3)
Quarter: 2013Q3

REPORT INFORMATION
  Report Type: Report from Study
  Country: NL (occurrence: NL)
  Receive Date: 20130507
  Receipt Date: 20130909
  Transmission Date: 20140515
  Serious: Yes (Hospitalization)
  Sender: FDA-Public Use
  Company Number: NL-GENZYME-CLOF-1002610

PATIENT
  Age: 12 Year
  Sex: Female
  Weight: 65 kg

DRUGS (10)
  1. EVOLTRA [Suspect]
     Indication: ACUTE MYELOID LEUKAEMIA RECURRENT
     Dosage: 73 MG, QD
     Route: 042
     Dates: start: 20130411, end: 20130416
  2. DAUNOXOME [Suspect]
     Indication: ACUTE MYELOID LEUKAEMIA RECURRENT
     Dosage: 100 MG, QD (DAY 1, 3 AND 5)
     Route: 042
     Dates: start: 20130412, end: 20130416
  3. ARA-C [Suspect]
     Indication: ACUTE MYELOID LEUKAEMIA RECURRENT
     Dosage: 3600 MG, QD
     Route: 042
     Dates: start: 20130411, end: 20130416
  4. ARA-C [Suspect]
     Dosage: 40 MG, QD
     Route: 037
     Dates: start: 20130417
  5. ONDANSETRON [Concomitant]
     Indication: NAUSEA
     Dosage: 24 MG, QD
     Route: 048
     Dates: start: 20130410
  6. CIPROXIN [Concomitant]
     Indication: INFECTION PROPHYLAXIS
     Dosage: 1000 MG, QD
     Route: 048
     Dates: start: 20130410
  7. ITRACONAZOLE [Concomitant]
     Indication: INFECTION PROPHYLAXIS
     Dosage: 200 MG, QD
     Route: 048
     Dates: start: 20130418
  8. MEDROXYPROGESTERONE [Concomitant]
     Indication: PROPHYLAXIS
     Dosage: 5 MG, QD
     Route: 048
     Dates: start: 20130418
  9. FENETICILINE [Concomitant]
     Indication: INFECTION PROPHYLAXIS
     Dosage: 500 MG, QD
     Route: 048
     Dates: start: 20130418
  10. COTRIMOXAZOL [Concomitant]
     Indication: ANTIFUNGAL PROPHYLAXIS
     Dosage: 960 MG, 3X/W (MONDAY, WEDNESDAY, FRIDAY)
     Route: 048
     Dates: start: 20130419

REACTIONS (4)
  - Dehydration [Recovered/Resolved]
  - Febrile neutropenia [Recovered/Resolved]
  - Hypotension [Recovered/Resolved]
  - Vomiting [Recovered/Resolved]
